FAERS Safety Report 22280244 (Version 1)
Quarter: 2023Q2

REPORT INFORMATION
  Report Type: Spontaneous
  Country: US (occurrence: US)
  Receive Date: 20230503
  Receipt Date: 20230503
  Transmission Date: 20230722
  Serious: Yes (Death, Other)
  Sender: FDA-Public Use
  Company Number: US-AMGEN-USASP2023071809

PATIENT
  Age: 83 Year
  Sex: Male

DRUGS (5)
  1. RITUXIMAB [Suspect]
     Active Substance: RITUXIMAB
     Indication: Diffuse large B-cell lymphoma
     Dosage: 375 MILLIGRAM PER SQUARE METRE, ON DAY 1 OF EACH CYCLE (C)
     Route: 042
  2. CYCLOPHOSPHAMIDE [Concomitant]
     Active Substance: CYCLOPHOSPHAMIDE
     Indication: Diffuse large B-cell lymphoma
     Dosage: 400 MILLIGRAM PER SQUARE METRE, ON DAY 1 OF EACH CYCLE (C)
     Route: 042
  3. DOXORUBICIN [Concomitant]
     Active Substance: DOXORUBICIN
     Indication: Diffuse large B-cell lymphoma
     Dosage: 25 MILLIGRAM PER SQUARE METRE, ON DAY 1 OF EACH CYCLE (C)
     Route: 042
  4. VINCRISTINE [Concomitant]
     Active Substance: VINCRISTINE
     Indication: Diffuse large B-cell lymphoma
     Dosage: 1 MILLIGRAM, ON DAY 1 OF EACH CYCLE (C)
     Route: 042
  5. PREDNISOLONE [Concomitant]
     Active Substance: PREDNISOLONE
     Indication: Diffuse large B-cell lymphoma
     Dosage: 40 MILLIGRAM PER SQUARE METRE, ON DAYS 1-5
     Route: 048

REACTIONS (10)
  - Death [Fatal]
  - Fall [Unknown]
  - Femur fracture [Unknown]
  - Neuropathy peripheral [Unknown]
  - Septic shock [Unknown]
  - Pneumonia [Unknown]
  - Pancytopenia [Recovered/Resolved]
  - Therapy partial responder [Unknown]
  - Palpitations [Unknown]
  - Constipation [Unknown]
